FAERS Safety Report 5596711-5 (Version None)
Quarter: 2007Q4

REPORT INFORMATION
  Report Type: 
  Country: None (occurrence: None)
  Receive Date: 20071220
  Receipt Date: 20061103
  Transmission Date: 20080405
  Serious: Yes (Other)
  Sender: FDA-Public Use
  Company Number: US-JNJFOC-20060301514

PATIENT
  Age: 33 Year
  Sex: Female
  Weight: 61.6892 kg

DRUGS (3)
  1. NORGESTIMATE AND ETHINYL ESTRADIOL [Suspect]
     Indication: CONTRACEPTION
     Dosage: 1 DOSE(S), 1 IN 1 DAY, ORAL
     Route: 048
     Dates: start: 20050101, end: 20060305
  2. AVONEX [Concomitant]
  3. AMANTADINE HCL [Concomitant]

REACTIONS (2)
  - DRUG EXPOSURE DURING PREGNANCY [None]
  - PREGNANCY ON ORAL CONTRACEPTIVE [None]
